FAERS Safety Report 8497166-3 (Version None)
Quarter: 2012Q3

REPORT INFORMATION
  Report Type: 
  Country: None (occurrence: None)
  Receive Date: 20120709
  Receipt Date: 20120605
  Transmission Date: 20120928
  Serious: No
  Sender: FDA-Public Use
  Company Number: US-AMGEN-USASP2012035096

PATIENT
  Age: 39 Year
  Sex: Male

DRUGS (1)
  1. ENBREL [Suspect]
     Indication: PSORIASIS
     Dosage: 50 MG, 2 TIMES/WK
     Dates: start: 20100101, end: 20120501

REACTIONS (5)
  - VISION BLURRED [None]
  - CHONDROPATHY [None]
  - LIGAMENT DISORDER [None]
  - DIZZINESS [None]
  - MENISCUS LESION [None]
